FAERS Safety Report 6714153-3 (Version None)
Quarter: 2010Q2

REPORT INFORMATION
  Report Type: 
  Country: None (occurrence: None)
  Receive Date: 20100506
  Receipt Date: 20100428
  Transmission Date: 20101027
  Serious: No
  Sender: FDA-Public Use
  Company Number: US-ROXANE LABORATORIES, INC.-2010-RO-00506RO

PATIENT
  Sex: Male

DRUGS (4)
  1. BUPRENORPHINE HYDROCHLORIDE [Suspect]
     Indication: DRUG WITHDRAWAL SYNDROME
     Dosage: 1 MG
     Route: 060
  2. EFFEXOR [Concomitant]
  3. TESTOSTERONE [Concomitant]
     Indication: BLOOD TESTOSTERONE DECREASED
     Route: 062
  4. HEART PILL [Concomitant]

REACTIONS (1)
  - DEPRESSED MOOD [None]
